FAERS Safety Report 7768446-1 (Version None)
Quarter: 2011Q3

REPORT INFORMATION
  Report Type: 
  Country: None (occurrence: None)
  Receive Date: 20110922
  Receipt Date: 20110301
  Transmission Date: 20111222
  Serious: No
  Sender: FDA-Public Use
  Company Number: US-ASTRAZENECA-2011SE11172

PATIENT
  Age: 64 Year
  Sex: Male

DRUGS (1)
  1. SEROQUEL [Suspect]
     Dosage: THREE TIMES A DAY
     Route: 048
     Dates: start: 20050101

REACTIONS (3)
  - RENAL FAILURE [None]
  - DIABETES MELLITUS [None]
  - CHRONIC OBSTRUCTIVE PULMONARY DISEASE [None]
